FAERS Safety Report 8191375-9 (Version None)
Quarter: 2012Q1

REPORT INFORMATION
  Report Type: 
  Country: None (occurrence: None)
  Receive Date: 20120307
  Receipt Date: 20111025
  Transmission Date: 20120608
  Serious: No
  Sender: FDA-Public Use
  Company Number: US-ASTRAZENECA-2009UW06559

PATIENT
  Sex: Female
  Weight: 57.6 kg

DRUGS (5)
  1. ZOMIG [Suspect]
     Route: 048
  2. ZOMIG [Suspect]
     Route: 048
  3. AUGMENTIN '125' [Concomitant]
     Indication: SINUSITIS
  4. SYNTHROID [Concomitant]
     Indication: HYPOTHYROIDISM
  5. CELEXA [Concomitant]
     Indication: MIGRAINE PROPHYLAXIS

REACTIONS (3)
  - MIGRAINE [None]
  - LARYNGITIS [None]
  - DRUG DOSE OMISSION [None]
